FAERS Safety Report 9456025 (Version 1)
Quarter: 2013Q3

REPORT INFORMATION
  Report Type: Spontaneous
  Country: DE (occurrence: DE)
  Receive Date: 20130813
  Receipt Date: 20130813
  Transmission Date: 20140515
  Serious: Yes (Other)
  Sender: FDA-Public Use
  Company Number: PHHY2013DE084978

PATIENT
  Age: 84 Year
  Sex: Female

DRUGS (2)
  1. LUCENTIS [Suspect]
     Indication: AGE-RELATED MACULAR DEGENERATION
     Dosage: UNK UKN, UNK
     Dates: start: 2011
  2. METHOTREXATE [Interacting]
     Dosage: 15 MG, QW

REACTIONS (2)
  - Retinal haemorrhage [Unknown]
  - Drug interaction [Unknown]
